FAERS Safety Report 10249329 (Version 1)
Quarter: 2014Q2

REPORT INFORMATION
  Report Type: Spontaneous
  Country: US (occurrence: None)
  Receive Date: 20140522
  Receipt Date: 20140522
  Transmission Date: 20141212
  Serious: No
  Sender: FDA-Public Use
  Company Number: 1000054674

PATIENT
  Age: 82 Year
  Sex: Male

DRUGS (4)
  1. TUDORZA PRESSAIR [Suspect]
     Indication: CHRONIC OBSTRUCTIVE PULMONARY DISEASE
     Dosage: 800 UG (400 UG, 2 IN 1 D)
     Route: 055
     Dates: start: 201312
  2. PROAIR HFA (SALBUTAMOL SULFATE) [Concomitant]
  3. CARTIA XT (DILTIAZEM HYDROCHLORIDE) [Concomitant]
  4. LISINOPRIL [Concomitant]

REACTIONS (1)
  - Dysuria [None]
